FAERS Safety Report 9505394 (Version 1)
Quarter: 2013Q1

REPORT INFORMATION
  Report Type: Spontaneous
  Country: US (occurrence: None)
  Receive Date: 20130220
  Receipt Date: 20130220
  Transmission Date: 20140127
  Serious: No
  Sender: FDA-Public Use
  Company Number: 1000040201

PATIENT
  Age: 55 Year
  Sex: Female

DRUGS (6)
  1. VIIBYRD [Suspect]
     Indication: DEPRESSION
     Dosage: 10 MG (10 MG, 1 IN 1 D), ORAL
     Route: 048
     Dates: start: 201205, end: 2012
  2. VIIBYRD [Suspect]
     Indication: DEPRESSION
     Dosage: 40 MG (40 MG, 1 IN 1 D), ORAL
     Route: 048
     Dates: start: 2012, end: 2012
  3. KLONOPIN [Concomitant]
  4. LISINOPRIL/HYDROCHLOROTHIAZIDE (ZESTORETIC) (ZESTORETIC) [Concomitant]
  5. ASPIRIN (ACETYLSALICYLIC ACID) (ACETYLSALICYLIC ACID) [Concomitant]
  6. PREMARIN (ESTROGENS CONJUGATED) (ESTROGENS CONJUGATED) [Concomitant]

REACTIONS (4)
  - Feeling jittery [None]
  - Insomnia [None]
  - Dizziness [None]
  - Nervousness [None]
